FAERS Safety Report 16674508 (Version 1)
Quarter: 2019Q3

REPORT INFORMATION
  Report Type: Spontaneous
  Country: GB (occurrence: GB)
  Receive Date: 20190806
  Receipt Date: 20190806
  Transmission Date: 20191004
  Serious: Yes (Other)
  Sender: FDA-Public Use
  Company Number: GB-MYLANLABS-2019M1073009

PATIENT
  Sex: Female

DRUGS (3)
  1. CARBAMAZEPINE. [Suspect]
     Active Substance: CARBAMAZEPINE
     Indication: PRODUCT USED FOR UNKNOWN INDICATION
     Dosage: 600 MILLIGRAM, BID (600MG IN THE MORNING AND 600MG AT NIGHT)
     Route: 065
  2. EPILIM [Suspect]
     Active Substance: VALPROATE SODIUM
     Indication: PRODUCT USED FOR UNKNOWN INDICATION
     Dosage: UNK UNK, BID (1200MG OF EPILIM IN THE MORNING AND 1300MG AT NIGHT)
     Route: 065
  3. SABRIL [Suspect]
     Active Substance: VIGABATRIN
     Indication: PRODUCT USED FOR UNKNOWN INDICATION
     Dosage: UNK (OVER 30 YEARS)
     Route: 065

REACTIONS (1)
  - Visual impairment [Unknown]
